FAERS Safety Report 4469294-0 (Version None)
Quarter: 2004Q4

REPORT INFORMATION
  Report Type: 
  Country: None (occurrence: None)
  Receive Date: 20041008
  Receipt Date: 20030924
  Transmission Date: 20050328
  Serious: No
  Sender: FDA-Public Use
  Company Number: US-BRISTOL-MYERS SQUIBB COMPANY-12392692

PATIENT
  Age: 70 Year
  Sex: Male

DRUGS (7)
  1. AVAPRO [Suspect]
     Indication: HYPERTENSION
     Dosage: THERAPY DATES: ^26-MAR-03, 03-JUN-03, 24-SEP-03.^
     Route: 048
     Dates: start: 20030326
  2. PREVACID [Concomitant]
  3. CLONIDINE HCL [Concomitant]
  4. FUROSEMIDE [Concomitant]
  5. ALLOPURINOL [Concomitant]
  6. CELEBREX [Concomitant]
  7. COUMADIN [Concomitant]

REACTIONS (2)
  - DYSGEUSIA [None]
  - STOMACH DISCOMFORT [None]
